FAERS Safety Report 7600854-1 (Version None)
Quarter: 2011Q3

REPORT INFORMATION
  Report Type: 
  Country: None (occurrence: None)
  Receive Date: 20110711
  Receipt Date: 20110628
  Transmission Date: 20111222
  Serious: Yes (Hospitalization, Other)
  Sender: FDA-Public Use
  Company Number: US-CELGENEUS-163-21660-11063705

PATIENT

DRUGS (6)
  1. ABRAXANE [Suspect]
     Dosage: 100 MILLIGRAM/SQ. METER
     Route: 051
  2. ANTIEMETIC THERAPY [Concomitant]
     Indication: ANTIEMETIC SUPPORTIVE CARE
     Route: 065
  3. TRASTUZUMAB [Suspect]
     Dosage: 6 MILLIGRAM/KILOGRAM
     Route: 051
  4. TRASTUZUMAB [Suspect]
     Dosage: 8 MILLIGRAM/KILOGRAM
     Route: 051
  5. GRANULOCYTE COLONY STIMULATING FACTOR [Concomitant]
     Indication: ANTIEMETIC SUPPORTIVE CARE
     Route: 065
  6. CYCLOPHOSPHAMIDE [Suspect]
     Dosage: 600 MILLIGRAM/SQ. METER
     Route: 051

REACTIONS (16)
  - NEUROPATHY PERIPHERAL [None]
  - ANAEMIA [None]
  - FATIGUE [None]
  - RASH [None]
  - MYALGIA [None]
  - DIARRHOEA [None]
  - HYPERSENSITIVITY [None]
  - NEUTROPENIA [None]
  - ARTHRALGIA [None]
  - ALOPECIA [None]
  - NAUSEA [None]
  - MENTAL STATUS CHANGES [None]
  - FEBRILE NEUTROPENIA [None]
  - MUCOSAL INFLAMMATION [None]
  - OEDEMA [None]
  - VOMITING [None]
